FAERS Safety Report 10511980 (Version 1)
Quarter: 2014Q4

REPORT INFORMATION
  Report Type: Spontaneous
  Country: US (occurrence: US)
  Receive Date: 20141010
  Receipt Date: 20141010
  Transmission Date: 20150528
  Serious: Yes (Other)
  Sender: FDA-Public Use
  Company Number: US-PFIZER INC-2014277492

PATIENT
  Age: 75 Year
  Sex: Male
  Weight: 86 kg

DRUGS (4)
  1. LYRICA [Suspect]
     Active Substance: PREGABALIN
     Dosage: 100 MG, UNK (TWICE AT NIGHT)
  2. LYRICA [Suspect]
     Active Substance: PREGABALIN
     Dosage: 50 MG, 1X/DAY
  3. LYRICA [Suspect]
     Active Substance: PREGABALIN
     Indication: DIABETIC NEUROPATHY
     Dosage: 25 MG, 2X/DAY
  4. LYRICA [Suspect]
     Active Substance: PREGABALIN
     Indication: NEURALGIA
     Dosage: 100 MG, 2X/DAY

REACTIONS (13)
  - Muscle spasms [Unknown]
  - Pain [Unknown]
  - Pain in extremity [Recovered/Resolved with Sequelae]
  - Drug ineffective [Unknown]
  - Cellulitis [Unknown]
  - Overdose [Unknown]
  - Gait disturbance [Unknown]
  - Insomnia [Unknown]
  - Emotional distress [Unknown]
  - Dysarthria [Unknown]
  - Paraesthesia [Recovered/Resolved with Sequelae]
  - Muscular weakness [Unknown]
  - Skin lesion [Unknown]
